FAERS Safety Report 6146101-1 (Version None)
Quarter: 2009Q2

REPORT INFORMATION
  Report Type: 
  Country: None (occurrence: None)
  Receive Date: 20090407
  Receipt Date: 20090331
  Transmission Date: 20091009
  Serious: Yes (Hospitalization, Disabling)
  Sender: FDA-Public Use
  Company Number: JP-BAYER-200910583BYL

PATIENT
  Age: 82 Year
  Sex: Female
  Weight: 46 kg

DRUGS (5)
  1. GLUCOBAY [Suspect]
     Indication: TYPE 2 DIABETES MELLITUS
     Dosage: TOTAL DAILY DOSE: 300 MG  UNIT DOSE: 100 MG
     Route: 048
     Dates: end: 20070201
  2. CRAVIT [Suspect]
     Indication: PYREXIA
     Dosage: TOTAL DAILY DOSE: 300 MG  UNIT DOSE: 100 MG
     Route: 048
     Dates: start: 20070125, end: 20070201
  3. AMLODIPINE [Concomitant]
     Dosage: TOTAL DAILY DOSE: 5 MG  UNIT DOSE: 5 MG
     Route: 048
     Dates: end: 20070201
  4. MAGNESIUM OXIDE [Concomitant]
     Dosage: AFTER BREAKFAST
     Route: 065
     Dates: end: 20070201
  5. MYSLEE [Concomitant]
     Dosage: TOTAL DAILY DOSE: 5 MG
     Route: 048
     Dates: end: 20070201

REACTIONS (1)
  - HYPOGLYCAEMIC COMA [None]
